FAERS Safety Report 5250126-8 (Version None)
Quarter: 2007Q1

REPORT INFORMATION
  Report Type: 
  Country: None (occurrence: None)
  Receive Date: 20070228
  Receipt Date: 20060209
  Transmission Date: 20070707
  Serious: No
  Sender: FDA-Public Use
  Company Number: US-GLAXOSMITHKLINE-A0593063A

PATIENT
  Age: 40 Month
  Sex: Female

DRUGS (6)
  1. LAMICTAL [Suspect]
     Indication: BIPOLAR DISORDER
     Dosage: 75MG PER DAY
     Route: 048
  2. VERAPAMIL [Concomitant]
  3. CATAPRES [Concomitant]
  4. LABETALOL HCL [Concomitant]
  5. AMILORIDE HYDROCHLORIDE [Concomitant]
  6. ZOLOFT [Concomitant]

REACTIONS (1)
  - BLOOD CREATININE INCREASED [None]
